FAERS Safety Report 15968029 (Version 2)
Quarter: 2019Q2

REPORT INFORMATION
  Report Type: Report from Study
  Country: CA (occurrence: CA)
  Receive Date: 20190215
  Receipt Date: 20190411
  Transmission Date: 20190711
  Serious: Yes (Disabling)
  Sender: FDA-Public Use
  Company Number: CA-JNJFOC-20190210285

PATIENT
  Age: 65 Year
  Sex: Female

DRUGS (1)
  1. STELARA [Suspect]
     Active Substance: USTEKINUMAB
     Indication: PSORIASIS
     Dosage: STRENGTH = 45 MG
     Route: 058
     Dates: start: 20180716

REACTIONS (1)
  - Migraine [Recovering/Resolving]

NARRATIVE: CASE EVENT DATE: 20190202
